FAERS Safety Report 26022725 (Version 1)
Quarter: 2025Q4

REPORT INFORMATION
  Report Type: Spontaneous
  Country: US (occurrence: None)
  Receive Date: 20251110
  Receipt Date: 20251110
  Transmission Date: 20260117
  Serious: No
  Sender: FDA-CTU
  Company Number: None

PATIENT
  Age: 89 Year
  Sex: Female

DRUGS (1)
  1. XDEMVY [Suspect]
     Active Substance: LOTILANER
     Indication: Ocular demodicosis
     Dosage: 1 GTT BID OPHTHALMIC
     Route: 047
     Dates: start: 20251109, end: 20251110

REACTIONS (5)
  - Drug hypersensitivity [None]
  - Eye pain [None]
  - Ocular hyperaemia [None]
  - Eye pruritus [None]
  - Foreign body sensation in eyes [None]

NARRATIVE: CASE EVENT DATE: 20251109
